FAERS Safety Report 24888626 (Version 2)
Quarter: 2025Q1

REPORT INFORMATION
  Report Type: Spontaneous
  Country: FR (occurrence: FR)
  Receive Date: 20250127
  Receipt Date: 20250207
  Transmission Date: 20250409
  Serious: Yes (Life-Threatening, Hospitalization, Other)
  Sender: AUROBINDO
  Company Number: FR-MLMSERVICE-20250108-PI331017-00249-1

PATIENT
  Age: 68 Year
  Sex: Male

DRUGS (3)
  1. OXALIPLATIN [Suspect]
     Active Substance: OXALIPLATIN
     Indication: Adenocarcinoma of colon
     Route: 065
     Dates: start: 202309, end: 202403
  2. FOLIC ACID [Suspect]
     Active Substance: FOLIC ACID
     Indication: Adenocarcinoma of colon
     Route: 065
     Dates: start: 202309, end: 202403
  3. FLUOROURACIL [Suspect]
     Active Substance: FLUOROURACIL
     Indication: Adenocarcinoma of colon
     Route: 065
     Dates: start: 202309, end: 202403

REACTIONS (4)
  - Cutaneous mucormycosis [Recovering/Resolving]
  - Mucormycosis [Recovering/Resolving]
  - Gastrointestinal necrosis [Recovering/Resolving]
  - Stoma site infection [Recovering/Resolving]

NARRATIVE: CASE EVENT DATE: 20240101
